FAERS Safety Report 7605528-9 (Version None)
Quarter: 2011Q3

REPORT INFORMATION
  Report Type: 
  Country: None (occurrence: None)
  Receive Date: 20110713
  Receipt Date: 20110630
  Transmission Date: 20111222
  Serious: Yes (Hospitalization)
  Sender: FDA-Public Use
  Company Number: DE-CELGENEUS-062-21880-11040038

PATIENT
  Age: 77 Year
  Sex: Female

DRUGS (62)
  1. REVLIMID [Suspect]
     Indication: MULTIPLE MYELOMA
     Dosage: 25 MILLIGRAM
     Route: 048
     Dates: start: 20081115, end: 20081209
  2. FENTANYL-100 [Concomitant]
     Dosage: 100 MILLIGRAM
     Route: 048
     Dates: start: 20090216, end: 20090216
  3. BISOPROLOL FUMARATE [Concomitant]
     Indication: HYPERTENSION
     Route: 048
     Dates: start: 20081221, end: 20081231
  4. PANTOPRAZOLE [Concomitant]
     Dosage: 80 MILLIGRAM
     Route: 048
     Dates: start: 20090129, end: 20090204
  5. FUROSEMIDE [Concomitant]
     Indication: PROPHYLAXIS
     Dosage: 20 MILLIGRAM
     Route: 048
     Dates: start: 20081224, end: 20081224
  6. COTRIM [Concomitant]
     Route: 048
     Dates: start: 20090213, end: 20090216
  7. REVLIMID [Suspect]
     Dosage: 10 MILLIGRAM
     Route: 048
     Dates: start: 20081210, end: 20090202
  8. FENTANYL-100 [Concomitant]
     Dosage: 100 MILLIGRAM
     Route: 048
     Dates: start: 20090131, end: 20090131
  9. FENTANYL-100 [Concomitant]
     Dosage: 100 MILLIGRAM
     Route: 048
     Dates: start: 20090219, end: 20090219
  10. BISOPROLOL FUMARATE [Concomitant]
     Route: 048
     Dates: start: 20090129, end: 20090204
  11. TEMAZEPAM [Concomitant]
     Dosage: 50 GRAM
     Route: 048
     Dates: start: 20081224, end: 20081231
  12. CEFIXIM [Concomitant]
     Indication: BRONCHITIS
     Dosage: 400 MILLIGRAM
     Route: 048
     Dates: start: 20081230, end: 20081231
  13. POTASSIUM IODIDE [Concomitant]
     Indication: THYROIDECTOMY
     Dosage: 100 MILLIGRAM
     Route: 048
     Dates: start: 20090129, end: 20090204
  14. HALOPERIDOL [Concomitant]
     Route: 048
     Dates: start: 20090219, end: 20090226
  15. IODIDE [Concomitant]
     Dosage: 100 MILLIGRAM
     Route: 048
     Dates: start: 20090211, end: 20090227
  16. REPROTEROL [Concomitant]
     Indication: BRONCHITIS
     Dosage: 400 MILLIGRAM
     Route: 051
     Dates: start: 20081223, end: 20081227
  17. DIMENHYDRINATE [Concomitant]
     Dosage: 124 MILLIGRAM
     Route: 051
     Dates: start: 20090224, end: 20090224
  18. HALOPERIDOL [Concomitant]
     Indication: NAUSEA
     Route: 048
     Dates: start: 20090218, end: 20090218
  19. PANTOPRAZOLE [Concomitant]
     Dosage: 40 MILLIGRAM
     Route: 051
     Dates: start: 20090211, end: 20090227
  20. MOVIPREP [Concomitant]
     Dosage: .15 GRAM
     Route: 048
     Dates: start: 20090129, end: 20090204
  21. NADROPARIN [Concomitant]
     Route: 058
     Dates: start: 20090129, end: 20090204
  22. PREDNISOLONE [Concomitant]
     Route: 048
     Dates: start: 20081230, end: 20081231
  23. DIAZEPAM [Concomitant]
     Indication: MYOTONIA
     Dosage: 4 GRAM
     Route: 048
     Dates: start: 20081228, end: 20081228
  24. CEFTRIAXON [Concomitant]
     Dosage: 2 GRAM
     Route: 051
     Dates: start: 20081222, end: 20081229
  25. FENTANYL-100 [Concomitant]
     Dosage: 150 MILLIGRAM
     Route: 048
     Dates: start: 20081231, end: 20081231
  26. MOVIPREP [Concomitant]
     Route: 048
     Dates: start: 20090211, end: 20090214
  27. NADROPARIN [Concomitant]
     Route: 058
     Dates: start: 20090223, end: 20090226
  28. PREDNISOLONE [Concomitant]
     Indication: BRONCHITIS
     Route: 048
     Dates: start: 20081228, end: 20081229
  29. THEOPHYLLINE [Concomitant]
     Indication: BRONCHITIS
     Dosage: 400 MILLIGRAM
     Route: 051
     Dates: start: 20081228, end: 20081231
  30. COTRIM [Concomitant]
     Indication: INFECTION PROPHYLAXIS
     Dosage: 1920 MILLIGRAM
     Route: 048
     Dates: start: 20090130, end: 20090130
  31. COTRIM [Concomitant]
     Route: 048
     Dates: start: 20090218, end: 20090227
  32. METOCLOPRAMIDE [Concomitant]
     Indication: NAUSEA
     Route: 048
     Dates: start: 20090201, end: 20090204
  33. DIMENHYDRINATE [Concomitant]
     Indication: NAUSEA
     Dosage: 124 MILLIGRAM
     Route: 051
     Dates: start: 20090219, end: 20090221
  34. DIMENHYDRINATE [Concomitant]
     Dosage: 62 MILLIGRAM
     Route: 051
     Dates: start: 20090223, end: 20090223
  35. FENTANYL-100 [Concomitant]
     Dosage: 150 MILLIGRAM
     Route: 048
     Dates: start: 20081228, end: 20081228
  36. FENTANYL-100 [Concomitant]
     Dosage: 100 MILLIGRAM
     Route: 048
     Dates: start: 20090213, end: 20090213
  37. BISOPROLOL FUMARATE [Concomitant]
     Route: 048
     Dates: start: 20090211, end: 20090212
  38. TEMAZEPAM [Concomitant]
     Dosage: 50 GRAM
     Route: 048
     Dates: start: 20081221, end: 20081222
  39. CORTISONE ACETATE [Concomitant]
     Indication: BRONCHITIS
     Route: 048
     Dates: start: 20081222, end: 20081224
  40. CORTISONE ACETATE [Concomitant]
     Route: 048
     Dates: start: 20081225, end: 20081227
  41. ENOXAPARIN [Concomitant]
     Indication: THROMBOSIS PROPHYLAXIS
     Dosage: .4 MILLILITER
     Route: 058
     Dates: start: 20081222, end: 20081227
  42. TERBUTALINE [Concomitant]
     Indication: DYSPNOEA
     Route: 058
     Dates: start: 20081221, end: 20081221
  43. LENOGRASTIM [Concomitant]
     Indication: NEUTROPENIA
     Dosage: 263 MILLIGRAM
     Route: 058
     Dates: start: 20090218, end: 20090219
  44. FENTANYL-100 [Concomitant]
     Dosage: 100 MILLIGRAM
     Route: 048
     Dates: start: 20090222, end: 20090222
  45. FENTANYL-100 [Concomitant]
     Dosage: 100 MILLIGRAM
     Route: 048
     Dates: start: 20090226, end: 20090226
  46. IODIDE [Concomitant]
     Indication: THYROIDECTOMY
     Dosage: 500 MILLIGRAM
     Route: 048
     Dates: start: 20081222, end: 20081231
  47. PANTOPRAZOLE [Concomitant]
     Indication: PROPHYLAXIS
     Dosage: 20 MILLIGRAM
     Route: 048
     Dates: start: 20081222, end: 20081231
  48. MOVIPREP [Concomitant]
     Indication: PROPHYLAXIS
     Dosage: 13.81 GRAM
     Route: 048
     Dates: start: 20081222, end: 20081231
  49. NADROPARIN [Concomitant]
     Indication: THROMBOSIS PROPHYLAXIS
     Dosage: .3 MILLILITER
     Route: 058
     Dates: start: 20081228, end: 20081231
  50. FUROSEMIDE [Concomitant]
     Dosage: 40 MILLIGRAM
     Route: 051
     Dates: start: 20090224, end: 20090224
  51. METAMIZOLE [Concomitant]
     Dosage: 500 MILLIGRAM
     Route: 048
     Dates: start: 20081224, end: 20081224
  52. HUMAN'S SANDOGLOBULIN [Concomitant]
     Indication: IMMUNODEFICIENCY
     Dosage: 10 MILLIGRAM
     Route: 051
     Dates: start: 20081230, end: 20081230
  53. CEFTRIAXON [Concomitant]
     Indication: INFECTION PROPHYLAXIS
     Dosage: 4 GRAM
     Route: 051
     Dates: start: 20081121, end: 20081221
  54. FENTANYL-100 [Concomitant]
     Dosage: 75 MILLIGRAM
     Route: 048
     Dates: start: 20081222, end: 20081222
  55. FENTANYL-100 [Concomitant]
     Dosage: 100 MILLIGRAM
     Route: 048
     Dates: start: 20090202, end: 20090202
  56. ACETYLCYSTEINE [Concomitant]
     Indication: COUGH
     Dosage: 600 MILLIGRAM
     Route: 048
     Dates: start: 20081221, end: 20081227
  57. DIAZEPAM [Concomitant]
     Dosage: 6 GRAM
     Route: 048
     Dates: start: 20081229, end: 20081231
  58. COTRIM [Concomitant]
     Dosage: 1920 MILLIGRAM
     Route: 048
     Dates: start: 20090202, end: 20090202
  59. COTRIM [Concomitant]
     Dosage: 1920 MILLIGRAM
     Route: 048
     Dates: start: 20090204, end: 20090204
  60. SODIUM PICOSULFATE [Concomitant]
     Route: 048
     Dates: start: 20090129, end: 20090204
  61. DIMENHYDRINATE [Concomitant]
     Dosage: 124 MILLIGRAM
     Route: 048
     Dates: start: 20090225, end: 20090225
  62. TORSEMIDE [Concomitant]
     Indication: PROPHYLAXIS
     Dosage: 5 MILLIGRAM
     Route: 048
     Dates: start: 20090225, end: 20090227

REACTIONS (6)
  - GENERAL PHYSICAL HEALTH DETERIORATION [None]
  - BRONCHITIS [None]
  - SEPSIS [None]
  - PANCYTOPENIA [None]
  - HYPOKALAEMIA [None]
  - MASTOIDITIS [None]
